FAERS Safety Report 15316594 (Version 1)
Quarter: 2018Q3

REPORT INFORMATION
  Report Type: Spontaneous
  Country: US (occurrence: US)
  Receive Date: 20180824
  Receipt Date: 20180824
  Transmission Date: 20181010
  Serious: Yes (Other)
  Sender: FDA-Public Use
  Company Number: US-BAYER-2018-156113

PATIENT
  Age: 61 Year
  Sex: Female

DRUGS (2)
  1. CIPRO [Suspect]
     Active Substance: CIPROFLOXACIN HYDROCHLORIDE
     Indication: URINARY TRACT INFECTION
     Dosage: UNK
     Route: 065
  2. HUMIRA [Suspect]
     Active Substance: ADALIMUMAB
     Indication: HIDRADENITIS
     Route: 058

REACTIONS (6)
  - Intervertebral disc degeneration [None]
  - Urinary tract infection [None]
  - Knee arthroplasty [None]
  - Knee arthroplasty [None]
  - Neuropathy peripheral [None]
  - Fungal infection [None]

NARRATIVE: CASE EVENT DATE: 2013
